FAERS Safety Report 4711026-2 (Version None)
Quarter: 2005Q2

REPORT INFORMATION
  Report Type: 
  Country: None (occurrence: None)
  Receive Date: 20050629
  Receipt Date: 20050308
  Transmission Date: 20051028
  Serious: No
  Sender: FDA-Public Use
  Company Number: 05P-163-0293493-00

PATIENT
  Age: 54 Year
  Sex: Female

DRUGS (8)
  1. HUMIRA [Suspect]
     Indication: RHEUMATOID ARTHRITIS
     Dosage: 40 MG, 1 IN 10 D, SUBCUTANEOUS; 40 MG, 1 IN 2 WK, SUBCUTANEOUS
     Route: 058
     Dates: start: 20030512, end: 20040901
  2. HUMIRA [Suspect]
     Indication: RHEUMATOID ARTHRITIS
     Dosage: 40 MG, 1 IN 10 D, SUBCUTANEOUS; 40 MG, 1 IN 2 WK, SUBCUTANEOUS
     Route: 058
     Dates: start: 20040901
  3. ROFECOXIB [Concomitant]
  4. HORMONE THERAPY [Concomitant]
  5. FEXOFENADINE HYDROCHLORIDE [Concomitant]
  6. OESTRANORM [Concomitant]
  7. LEVOTHYROXINE SODIUM [Concomitant]
  8. FLUTICASONE PROPIONATE [Concomitant]

REACTIONS (1)
  - CATARACT [None]
